FAERS Safety Report 4798070-4 (Version None)
Quarter: 2005Q4

REPORT INFORMATION
  Report Type: 
  Country: None (occurrence: None)
  Receive Date: 20051006
  Receipt Date: 20051006
  Transmission Date: 20060501
  Serious: Yes (Other)
  Sender: FDA-Public Use
  Company Number: None

PATIENT
  Age: 78 Year
  Sex: Female
  Weight: 61.2356 kg

DRUGS (1)
  1. FENTANYL [Suspect]
     Indication: CANCER PAIN
     Dosage: 25 MCG/ CHANGE Q 72 H
     Dates: start: 20050921, end: 20050928

REACTIONS (3)
  - MEDICATION ERROR [None]
  - OVERDOSE [None]
  - SEDATION [None]
